FAERS Safety Report 24810111 (Version 1)
Quarter: 2025Q1

REPORT INFORMATION
  Report Type: Spontaneous
  Country: US (occurrence: US)
  Receive Date: 20250106
  Receipt Date: 20250106
  Transmission Date: 20250409
  Serious: No
  Sender: ANI
  Company Number: US-ANIPHARMA-2024-US-056972

PATIENT
  Age: 35 Year
  Sex: Female
  Weight: 50.8 kg

DRUGS (5)
  1. FLUVOXAMINE MALEATE [Suspect]
     Active Substance: FLUVOXAMINE MALEATE
     Indication: Depression
     Route: 048
     Dates: start: 20240901
  2. VITAMIN D3 [Suspect]
     Active Substance: CHOLECALCIFEROL
     Indication: Product used for unknown indication
     Dates: start: 20241014, end: 20241016
  3. CALCIUM [Suspect]
     Active Substance: CALCIUM
     Indication: Product used for unknown indication
     Dates: start: 20241014, end: 20241016
  4. MAGNESIUM [Suspect]
     Active Substance: MAGNESIUM
     Indication: Product used for unknown indication
     Dates: start: 20241014, end: 20241016
  5. ZINC [Suspect]
     Active Substance: ZINC
     Indication: Product used for unknown indication
     Dates: start: 20241014, end: 20241016

REACTIONS (7)
  - Cardiac flutter [Not Recovered/Not Resolved]
  - Therapeutic response unexpected [Recovering/Resolving]
  - Product use in unapproved indication [Not Recovered/Not Resolved]
  - Drug interaction [Unknown]
  - Drug ineffective for unapproved indication [Recovering/Resolving]
  - Coating in mouth [Recovered/Resolved]
  - Drug ineffective [Recovering/Resolving]

NARRATIVE: CASE EVENT DATE: 20240901
